FAERS Safety Report 8806344 (Version 1)
Quarter: 2012Q4

REPORT INFORMATION
  Report Type: Spontaneous
  Country: US (occurrence: None)
  Receive Date: 20120918
  Receipt Date: 20120918
  Transmission Date: 20130627
  Serious: No
  Sender: FDA-Public Use
  Company Number: None

PATIENT

DRUGS (2)
  1. KETOPROFEN [Suspect]
  2. PIROXICAM [Suspect]

REACTIONS (5)
  - Oedema peripheral [None]
  - Erythema [None]
  - Application site urticaria [None]
  - Drug effect increased [None]
  - Burning sensation [None]
